FAERS Safety Report 8003113-0 (Version None)
Quarter: 2011Q4

REPORT INFORMATION
  Report Type: 
  Country: None (occurrence: None)
  Receive Date: 20111222
  Receipt Date: 20111212
  Transmission Date: 20120403
  Serious: Yes (Other)
  Sender: FDA-Public Use
  Company Number: PHEH2008US03117

PATIENT
  Sex: Female

DRUGS (20)
  1. AREDIA [Suspect]
     Indication: METASTASES TO BONE
     Dosage: UNK UKN, QMO
  2. HYDROCHLOROTHIAZIDE [Concomitant]
  3. NAVELBINE [Concomitant]
  4. ZOMETA [Suspect]
     Dosage: UNK
     Dates: start: 20090401
  5. PRAVASTATIN SODIUM [Concomitant]
  6. AROMASIN [Concomitant]
  7. LISINOPRIL [Concomitant]
  8. ZOMETA [Suspect]
     Indication: BREAST CANCER METASTATIC
     Dosage: UNK UKN, QMO
     Route: 042
     Dates: start: 20060227
  9. PAROXETINE HCL [Concomitant]
  10. ZETIA [Concomitant]
  11. XANAX [Concomitant]
  12. VYTORIN [Concomitant]
  13. ASPIRIN [Concomitant]
  14. FASLODEX [Concomitant]
  15. CALTRATE +D [Concomitant]
  16. VICODIN [Concomitant]
  17. FEMARA [Concomitant]
  18. AMLODIPINE BESYLATE [Concomitant]
  19. ARIMIDEX [Concomitant]
     Dosage: UNK UKN, UNK
     Dates: start: 20101001
  20. XELODA [Concomitant]
     Dosage: 500 MG

REACTIONS (45)
  - EMOTIONAL DISTRESS [None]
  - NEOPLASM MALIGNANT [None]
  - BONE LESION [None]
  - HAEMORRHOIDS [None]
  - PHYSICAL DISABILITY [None]
  - HYPERTENSION [None]
  - INTERVERTEBRAL DISC SPACE NARROWING [None]
  - SWOLLEN TONGUE [None]
  - SCAR [None]
  - HEPATIC LESION [None]
  - CARDIAC MURMUR [None]
  - THYROID NEOPLASM [None]
  - INFECTION [None]
  - NEOPLASM PROGRESSION [None]
  - OSTEOSCLEROSIS [None]
  - EXOSTOSIS [None]
  - CONSTIPATION [None]
  - PAIN [None]
  - METASTASES TO LIVER [None]
  - OSTEOPENIA [None]
  - EXPOSED BONE IN JAW [None]
  - PAIN IN JAW [None]
  - METASTASES TO BONE [None]
  - BACK PAIN [None]
  - FALL [None]
  - FOOT FRACTURE [None]
  - ARTHRITIS [None]
  - HYPERLIPIDAEMIA [None]
  - HEPATIC STEATOSIS [None]
  - SPINAL OSTEOARTHRITIS [None]
  - BLOOD CHOLESTEROL INCREASED [None]
  - RIB FRACTURE [None]
  - OSTEOPOROSIS [None]
  - ANGIOEDEMA [None]
  - ORAL DISORDER [None]
  - ENDOMETRIAL DISORDER [None]
  - ERYTHEMA [None]
  - OSTEONECROSIS OF JAW [None]
  - INJURY [None]
  - ANXIETY [None]
  - NEPHROLITHIASIS [None]
  - NEUROPATHY PERIPHERAL [None]
  - PLEURAL FIBROSIS [None]
  - ATELECTASIS [None]
  - POSTMENOPAUSAL HAEMORRHAGE [None]
